FAERS Safety Report 10682122 (Version 5)
Quarter: 2018Q4

REPORT INFORMATION
  Report Type: Spontaneous
  Country: BR (occurrence: BR)
  Receive Date: 20141230
  Receipt Date: 20181214
  Transmission Date: 20190204
  Serious: Yes (Other)
  Sender: FDA-Public Use
  Company Number: BR-SA-2014SA173373

PATIENT
  Sex: Male
  Weight: 103 kg

DRUGS (27)
  1. LANTUS [Suspect]
     Active Substance: INSULIN GLARGINE
     Indication: TYPE 2 DIABETES MELLITUS
     Dosage: UNK UNK,BID
     Route: 058
     Dates: start: 2009
  2. LANTUS [Suspect]
     Active Substance: INSULIN GLARGINE
     Dosage: 105 IU,QD
     Route: 058
  3. ACETYLSALICYLIC ACID [Concomitant]
     Active Substance: ASPIRIN
     Indication: CARDIAC DISORDER
     Dosage: 1 DF,QD
     Route: 048
     Dates: start: 1998
  4. LIPANON [Concomitant]
     Active Substance: FENOFIBRATE
     Indication: BLOOD CHOLESTEROL
     Dosage: 1 DF,QD
     Route: 065
     Dates: start: 201411
  5. INSULIN LISPRO [Concomitant]
     Active Substance: INSULIN LISPRO
     Indication: TYPE 2 DIABETES MELLITUS
     Dosage: 2 IU^S EVERY 100MG/DL CHANGED UPTO GLYCEMIC VALUE OF 100MG / DL
     Route: 058
     Dates: start: 2009
  6. ATORVASTATIN [Concomitant]
     Active Substance: ATORVASTATIN
     Indication: BLOOD TRIGLYCERIDES
     Dosage: 1 DF,QD
     Route: 065
  7. AMLODIPINE [Concomitant]
     Active Substance: AMLODIPINE BESYLATE
     Indication: CARDIAC DISORDER
     Dosage: 1 DF,QD
     Route: 048
     Dates: start: 2007
  8. TRAYENTA [Concomitant]
     Active Substance: LINAGLIPTIN
     Indication: TYPE 2 DIABETES MELLITUS
     Dosage: 1 DF,QD
  9. ALLOPURINOL. [Concomitant]
     Active Substance: ALLOPURINOL
     Indication: RENAL DISORDER
     Dosage: 1 DF,QD
     Route: 048
     Dates: start: 2015
  10. LANTUS [Suspect]
     Active Substance: INSULIN GLARGINE
     Dosage: 105 IU,QD
     Route: 058
  11. LANTUS [Suspect]
     Active Substance: INSULIN GLARGINE
     Dosage: UNK UNK,BID
     Dates: start: 2013
  12. VELIJA [Concomitant]
     Active Substance: DULOXETINE HYDROCHLORIDE
     Indication: PARAESTHESIA
     Dosage: 1 DF, QD
     Route: 048
  13. LIPANON [Suspect]
     Active Substance: FENOFIBRATE
     Indication: BLOOD CHOLESTEROL ABNORMAL
     Dosage: UNK UNK,QD
     Route: 065
  14. LEVOTHYROXINE SODIUM. [Concomitant]
     Active Substance: LEVOTHYROXINE SODIUM
     Indication: THYROID DISORDER
     Dosage: 1 DF,QD
     Dates: start: 2008
  15. FORXIGA [Concomitant]
     Active Substance: DAPAGLIFLOZIN
     Indication: TYPE 2 DIABETES MELLITUS
     Dosage: 1 DF,QD
     Dates: start: 2001
  16. METOPROLOL. [Concomitant]
     Active Substance: METOPROLOL
     Indication: CARDIAC DISORDER
     Dosage: 1 DF,QD
     Dates: start: 2008
  17. LOSARTAN. [Concomitant]
     Active Substance: LOSARTAN
     Indication: CARDIAC DISORDER
     Dosage: 1 DF,QD
     Route: 048
     Dates: start: 2007
  18. INSULIN LISPRO [Concomitant]
     Active Substance: INSULIN LISPRO
     Dosage: UNK
     Dates: start: 201412
  19. ATORVASTATIN [Concomitant]
     Active Substance: ATORVASTATIN
     Indication: BLOOD CHOLESTEROL ABNORMAL
  20. SELOZOK [Concomitant]
     Active Substance: METOPROLOL SUCCINATE
     Indication: CARDIAC DISCOMFORT
     Dosage: 1 DF,QD
     Route: 048
     Dates: start: 2010
  21. ENTRESTO [Concomitant]
     Active Substance: SACUBITRIL\VALSARTAN
     Dosage: 1 DF, QD
     Route: 048
  22. HYDROCHLOROTHIAZIDE. [Concomitant]
     Active Substance: HYDROCHLOROTHIAZIDE
     Indication: DIURETIC THERAPY
     Dosage: 1 DF, QD
     Route: 048
  23. ATORVASTATIN [Suspect]
     Active Substance: ATORVASTATIN
     Indication: BLOOD CHOLESTEROL ABNORMAL
     Dosage: UNK UNK,QD
     Route: 065
  24. LANTUS [Suspect]
     Active Substance: INSULIN GLARGINE
     Dosage: 55IU AROUND 11AM AND 40IU AT NIGHT
     Dates: start: 1996
  25. ATORVASTATIN [Suspect]
     Active Substance: ATORVASTATIN
     Indication: BLOOD TRIGLYCERIDES
  26. ACETYLSALICYLIC ACID [Concomitant]
     Active Substance: ASPIRIN
     Indication: SENSATION OF BLOOD FLOW
  27. FUROSEMIDE. [Concomitant]
     Active Substance: FUROSEMIDE
     Indication: DIURETIC THERAPY
     Dosage: 1 DF,QD
     Route: 048
     Dates: start: 2007

REACTIONS (25)
  - Renal failure [Unknown]
  - Cataract operation [Unknown]
  - Sensory loss [Not Recovered/Not Resolved]
  - Jaw disorder [Unknown]
  - Weight decreased [Unknown]
  - Abnormal sensation in eye [Unknown]
  - Hepatic steatosis [Unknown]
  - Blood triglycerides increased [Unknown]
  - Cerebrovascular accident [Unknown]
  - Mastication disorder [Unknown]
  - Blood glucose increased [Not Recovered/Not Resolved]
  - Off label use [Unknown]
  - Oral discomfort [Unknown]
  - Diarrhoea [Unknown]
  - Device operational issue [Unknown]
  - Muscle spasms [Not Recovered/Not Resolved]
  - Product administration error [Unknown]
  - Paraesthesia [Not Recovered/Not Resolved]
  - Tooth infection [Unknown]
  - Bone loss [Unknown]
  - Viral disease carrier [Unknown]
  - Visual impairment [Not Recovered/Not Resolved]
  - Stress [Unknown]
  - Paraesthesia [Unknown]
  - Low density lipoprotein [Unknown]

NARRATIVE: CASE EVENT DATE: 2008
